FAERS Safety Report 7724728-0 (Version None)
Quarter: 2011Q3

REPORT INFORMATION
  Report Type: 
  Country: None (occurrence: None)
  Receive Date: 20110901
  Receipt Date: 20110823
  Transmission Date: 20111222
  Serious: Yes (Hospitalization)
  Sender: FDA-Public Use
  Company Number: US-ELI_LILLY_AND_COMPANY-US201108008113

PATIENT
  Sex: Female

DRUGS (3)
  1. NOVOLOG [Concomitant]
     Dosage: UNK
  2. HUMALOG MIX 75/25 [Suspect]
     Dosage: 95 U, EACH EVENING
     Dates: start: 20080101
  3. HUMALOG MIX 75/25 [Suspect]
     Indication: TYPE 2 DIABETES MELLITUS
     Dosage: 92 U, EACH MORNING
     Dates: start: 20080101

REACTIONS (2)
  - KNEE ARTHROPLASTY [None]
  - SURGERY [None]
